FAERS Safety Report 6508882-4 (Version None)
Quarter: 2009Q4

REPORT INFORMATION
  Report Type: 
  Country: None (occurrence: None)
  Receive Date: 20091221
  Receipt Date: 20090813
  Transmission Date: 20100525
  Serious: No
  Sender: FDA-Public Use
  Company Number: US-ASTRAZENECA-2009SE08005

PATIENT
  Age: 64 Year
  Sex: Female

DRUGS (6)
  1. CRESTOR [Suspect]
     Indication: BLOOD CHOLESTEROL INCREASED
     Route: 048
     Dates: start: 20090729
  2. AVALIDE [Concomitant]
  3. AMLODIPIONE [Concomitant]
  4. VITAMIN B-12 [Concomitant]
  5. VITAMIN B6 [Concomitant]
  6. PLAVIX [Concomitant]

REACTIONS (1)
  - PAIN IN EXTREMITY [None]
